FAERS Safety Report 9309556 (Version 1)
Quarter: 2013Q2

REPORT INFORMATION
  Report Type: Spontaneous
  Country: US (occurrence: US)
  Receive Date: 20130525
  Receipt Date: 20130525
  Transmission Date: 20140414
  Serious: No
  Sender: FDA-Public Use
  Company Number: US-BRISTOL-MYERS SQUIBB COMPANY-18727958

PATIENT
  Age: 63 Year
  Sex: Male
  Weight: 79.37 kg

DRUGS (3)
  1. BYDUREON [Suspect]
     Indication: TYPE 2 DIABETES MELLITUS
     Route: 058
  2. GLUCOVANCE [Concomitant]
     Indication: TYPE 2 DIABETES MELLITUS
     Route: 048
  3. AMARYL [Concomitant]
     Indication: TYPE 2 DIABETES MELLITUS
     Route: 048

REACTIONS (1)
  - Injection site nodule [Not Recovered/Not Resolved]
